FAERS Safety Report 5763281-8 (Version None)
Quarter: 2008Q2

REPORT INFORMATION
  Report Type: 
  Country: None (occurrence: None)
  Receive Date: 20080602
  Receipt Date: 20080313
  Transmission Date: 20081010
  Serious: No
  Sender: FDA-Public Use
  Company Number: PHEH2008US02838

PATIENT
  Age: 70 Year
  Sex: Female
  Weight: 81.6 kg

DRUGS (3)
  1. TEKTURNA [Suspect]
     Indication: HYPERTENSION
     Dosage: 150 MG, QD, ORAL
     Route: 048
     Dates: start: 20071201, end: 20080201
  2. INSULIN(INSULIN) [Suspect]
  3. DIOVAN [Concomitant]

REACTIONS (1)
  - TREMOR [None]
